FAERS Safety Report 17540343 (Version 3)
Quarter: 2020Q3

REPORT INFORMATION
  Report Type: Report from Study
  Country: US (occurrence: US)
  Receive Date: 20200313
  Receipt Date: 20200713
  Transmission Date: 20201102
  Serious: Yes (Hospitalization, Other)
  Sender: FDA-Public Use
  Company Number: US-GILEAD-2020-0454847

PATIENT
  Sex: Female

DRUGS (1)
  1. IDELALISIB [Suspect]
     Active Substance: IDELALISIB
     Indication: CHRONIC LYMPHOCYTIC LEUKAEMIA
     Dosage: 100 MG, BID
     Route: 048
     Dates: start: 20151114

REACTIONS (6)
  - Fall [Unknown]
  - White blood cell count decreased [Unknown]
  - Fall [Recovering/Resolving]
  - Skin cancer [Unknown]
  - Pelvic fracture [Recovering/Resolving]
  - Spinal fracture [Unknown]
